FAERS Safety Report 8241510-9 (Version None)
Quarter: 2012Q1

REPORT INFORMATION
  Report Type: 
  Country: None (occurrence: None)
  Receive Date: 20120328
  Receipt Date: 20110412
  Transmission Date: 20120608
  Serious: No
  Sender: FDA-Public Use
  Company Number: US-COVIDIEN/TYCO HEALTHCARE/MALLINCKRODT-T201100772

PATIENT
  Sex: Female
  Weight: 69.4 kg

DRUGS (4)
  1. ACETAMINOPHEN AND HYDROCODONE BITARTRATE [Suspect]
     Indication: BREAKTHROUGH PAIN
  2. METHADONE HCL [Suspect]
     Indication: BACK PAIN
     Dosage: 5 MG, BID
     Route: 048
  3. ACETAMINOPHEN AND HYDROCODONE BITARTRATE [Concomitant]
     Dosage: 10/325 MG, 1 TAB UP TO 4X PER DAY
     Dates: end: 20110109
  4. ACETAMINOPHEN AND HYDROCODONE BITARTRATE [Suspect]
     Indication: BACK PAIN
     Dosage: 1 TABLET UP TO FOUR TIMES A DAY
     Route: 048
     Dates: start: 20110101, end: 20110210

REACTIONS (10)
  - ANXIETY [None]
  - DECREASED APPETITE [None]
  - FEELING JITTERY [None]
  - DYSPNOEA [None]
  - NERVOUSNESS [None]
  - DEPRESSED MOOD [None]
  - TREMOR [None]
  - PAIN IN EXTREMITY [None]
  - INSOMNIA [None]
  - PAIN [None]
